FAERS Safety Report 20379655 (Version 3)
Quarter: 2022Q1

REPORT INFORMATION
  Report Type: Spontaneous
  Country: IN (occurrence: IN)
  Receive Date: 20220126
  Receipt Date: 20220223
  Transmission Date: 20220424
  Serious: Yes (Death, Other)
  Sender: FDA-Public Use
  Company Number: IN-GILEAD-2022-0565978

PATIENT
  Age: 56 Year
  Sex: Male

DRUGS (3)
  1. VEKLURY [Suspect]
     Active Substance: REMDESIVIR
     Indication: COVID-19
     Route: 065
  2. DEXAMETHASONE [Concomitant]
     Active Substance: DEXAMETHASONE
  3. HUMAN PLASMA [Concomitant]
     Active Substance: HUMAN PLASMA

REACTIONS (2)
  - Drug ineffective [Unknown]
  - Disease progression [Fatal]
